FAERS Safety Report 24659926 (Version 1)
Quarter: 2024Q4

REPORT INFORMATION
  Report Type: Report from Study
  Country: CA (occurrence: CA)
  Receive Date: 20241125
  Receipt Date: 20241125
  Transmission Date: 20250115
  Serious: Yes (Other)
  Sender: TAKEDA
  Company Number: CA-TAKEDA-2024TUS116125

PATIENT
  Age: 64 Year
  Sex: Female

DRUGS (8)
  1. TEDUGLUTIDE [Suspect]
     Active Substance: TEDUGLUTIDE
     Indication: Short-bowel syndrome
     Dosage: 1.88 MILLIGRAM, 1/WEEK
     Dates: start: 20170707, end: 20170718
  2. TEDUGLUTIDE [Suspect]
     Active Substance: TEDUGLUTIDE
     Dosage: 2 MILLIGRAM, 1/WEEK
     Dates: start: 20170718, end: 20200202
  3. TEDUGLUTIDE [Suspect]
     Active Substance: TEDUGLUTIDE
     Dosage: 3.395 MILLIGRAM, 1/WEEK
     Dates: start: 20200202
  4. TEDUGLUTIDE [Suspect]
     Active Substance: TEDUGLUTIDE
     Dosage: 3.4 MILLIGRAM, 1/WEEK
     Dates: start: 20200202, end: 20221220
  5. FERROUS FUMARATE [Concomitant]
     Active Substance: FERROUS FUMARATE
     Indication: Iron deficiency
     Dosage: 100 MILLIGRAM, QOD
     Dates: start: 2021
  6. ACYCLOVIR [Concomitant]
     Active Substance: ACYCLOVIR
     Indication: Oral herpes
     Dosage: 400 MILLIGRAM
  7. CODEINE [Concomitant]
     Active Substance: CODEINE
     Indication: Diarrhoea
     Dosage: 15 MILLIGRAM, TID
     Dates: start: 20200707
  8. PIPERACILLIN SODIUM\TAZOBACTAM SODIUM [Concomitant]
     Active Substance: PIPERACILLIN SODIUM\TAZOBACTAM SODIUM
     Indication: Cholecystitis
     Dosage: 999 UNK
     Dates: start: 20180918, end: 20180928

REACTIONS (1)
  - Enterococcal bacteraemia [Recovered/Resolved]

NARRATIVE: CASE EVENT DATE: 20240922
